FAERS Safety Report 8788282 (Version 1)
Quarter: 2012Q4

REPORT INFORMATION
  Report Type: Report from Study
  Country: US (occurrence: US)
  Receive Date: 20120914
  Receipt Date: 20120914
  Transmission Date: 20130627
  Serious: No
  Sender: FDA-Public Use
  Company Number: US-VERTEX PHARMACEUTICAL INC.-AE-2012-011789

PATIENT
  Age: 58 Year
  Sex: Female
  Weight: 76.82 kg

DRUGS (4)
  1. INCIVEK [Suspect]
     Indication: HEPATITIS C
     Route: 048
     Dates: start: 20120416, end: 20120713
  2. RIBAVIRIN [Concomitant]
     Dates: end: 20120713
  3. PEGINTRON REDIPEN [Concomitant]
     Indication: HEPATITIS C
     Dates: end: 20120713
  4. PROCRIT [Concomitant]
     Route: 058

REACTIONS (2)
  - Dyspnoea [Unknown]
  - Glaucoma [Unknown]
